FAERS Safety Report 17225797 (Version 1)
Quarter: 2020Q1

REPORT INFORMATION
  Report Type: Spontaneous
  Country: US (occurrence: US)
  Receive Date: 20200102
  Receipt Date: 20200102
  Transmission Date: 20200409
  Serious: No
  Sender: FDA-Public Use
  Company Number: US-ASTRAZENECA-2019SF75764

PATIENT
  Age: 62 Year
  Sex: Female

DRUGS (1)
  1. FASENRA [Suspect]
     Active Substance: BENRALIZUMAB
     Indication: ASTHMA
     Route: 058

REACTIONS (8)
  - Hypertension [Unknown]
  - Headache [Unknown]
  - Asthma [Unknown]
  - Cough [Unknown]
  - Salivary hypersecretion [Unknown]
  - Oropharyngeal pain [Unknown]
  - Lethargy [Unknown]
  - Dyspnoea [Unknown]
